FAERS Safety Report 6871968-9 (Version None)
Quarter: 2010Q3

REPORT INFORMATION
  Report Type: 
  Country: None (occurrence: None)
  Receive Date: 20100723
  Receipt Date: 20100713
  Transmission Date: 20110219
  Serious: Yes (Other)
  Sender: FDA-Public Use
  Company Number: CA-JNJFOC-20100704466

PATIENT
  Sex: Male
  Weight: 77.2 kg

DRUGS (7)
  1. REMICADE [Suspect]
     Indication: CROHN'S DISEASE
     Dosage: 3RD INFUSION
     Route: 042
  2. REMICADE [Suspect]
     Route: 042
  3. BENADRYL [Concomitant]
     Indication: PREMEDICATION
     Route: 042
  4. TYLENOL [Concomitant]
     Indication: PREMEDICATION
     Route: 048
  5. IMURAN [Concomitant]
     Dosage: 4 TABS/DAY
     Route: 048
  6. TYLENOL W/ CODEINE NO. 4 [Concomitant]
  7. IMOVANE [Concomitant]

REACTIONS (5)
  - ABDOMINAL PAIN [None]
  - DECREASED APPETITE [None]
  - FREQUENT BOWEL MOVEMENTS [None]
  - HAEMATOCHEZIA [None]
  - WEIGHT DECREASED [None]
